FAERS Safety Report 4967871-1 (Version None)
Quarter: 2006Q2

REPORT INFORMATION
  Report Type: 
  Country: None (occurrence: None)
  Receive Date: 20060410
  Receipt Date: 20050930
  Transmission Date: 20061013
  Serious: Yes (Hospitalization, Other)
  Sender: FDA-Public Use
  Company Number: US-MERCK-0510USA02037

PATIENT
  Age: 50 Year
  Sex: Female
  Weight: 58 kg

DRUGS (4)
  1. VIOXX [Suspect]
     Indication: ARTHRALGIA
     Route: 048
     Dates: start: 19991108, end: 20020710
  2. VIOXX [Suspect]
     Route: 048
     Dates: start: 19991108, end: 20020710
  3. VIOXX [Suspect]
     Indication: BACK PAIN
     Route: 048
     Dates: start: 19991108, end: 20020710
  4. VIOXX [Suspect]
     Route: 048
     Dates: start: 19991108, end: 20020710

REACTIONS (6)
  - ANXIETY [None]
  - CEREBROVASCULAR ACCIDENT [None]
  - PNEUMONIA [None]
  - POLYTRAUMATISM [None]
  - TRANSIENT ISCHAEMIC ATTACK [None]
  - VAGINAL HAEMORRHAGE [None]
